FAERS Safety Report 4984045-9 (Version None)
Quarter: 2006Q1

REPORT INFORMATION
  Report Type: 
  Country: None (occurrence: None)
  Receive Date: 20060301
  Receipt Date: 20051020
  Transmission Date: 20060701
  Serious: No
  Sender: FDA-Public Use
  Company Number: S05-USA-04801-01

PATIENT

DRUGS (1)
  1. NAMENDA [Suspect]

REACTIONS (1)
  - HYPOACUSIS [None]
